FAERS Safety Report 23677199 (Version 1)
Quarter: 2024Q1

REPORT INFORMATION
  Report Type: Spontaneous
  Country: TR (occurrence: TR)
  Receive Date: 20240327
  Receipt Date: 20240327
  Transmission Date: 20240410
  Serious: Yes (Other)
  Sender: FDA-Public Use
  Company Number: TR-AMGEN-TURSP2024058482

PATIENT

DRUGS (6)
  1. BEVACIZUMAB [Suspect]
     Active Substance: BEVACIZUMAB
     Indication: Brain stem glioma
     Dosage: 10 MILLIGRAM/KILOGRAM, QD, ON DAYS 1 AND 15
     Route: 065
  2. IRINOTECAN [Concomitant]
     Active Substance: IRINOTECAN
     Indication: Brain stem glioma
     Dosage: 125 MILLIGRAM/SQ. METER, QD, DAYS 1 AND 15,
     Route: 065
  3. TEMOZOLOMIDE [Concomitant]
     Active Substance: TEMOZOLOMIDE
     Indication: Brain stem glioma
     Dosage: 150 MILLIGRAM/SQ. METER, QD, ON DAYS 1-5,
     Route: 065
  4. NIMOTUZUMAB [Concomitant]
     Active Substance: NIMOTUZUMAB
     Indication: Brain stem glioma
     Dosage: 150 MILLIGRAM/SQ. METER, QD, ONCE A WEEK FOR 12 WEEKS
     Route: 042
  5. VINORELBINE [Concomitant]
     Active Substance: VINORELBINE TARTRATE
     Indication: Brain stem glioma
     Dosage: 20 MILLIGRAM/SQ. METER, QD, ONCE A WEEK FOR THE FIRST 12 WEEKS
     Route: 065
  6. VINORELBINE [Concomitant]
     Active Substance: VINORELBINE TARTRATE
     Dosage: 25 MILLIGRAM/SQ. METER, Q2WK AFTER 12 WEEK

REACTIONS (7)
  - Brain stem glioma [Unknown]
  - Neutropenia [Unknown]
  - Thrombocytopenia [Unknown]
  - Alanine aminotransferase [Unknown]
  - Aspartate aminotransferase increased [Unknown]
  - Diarrhoea [Unknown]
  - Off label use [Unknown]
